FAERS Safety Report 6227886-2 (Version None)
Quarter: 2009Q2

REPORT INFORMATION
  Report Type: 
  Country: None (occurrence: None)
  Receive Date: 20090612
  Receipt Date: 20090603
  Transmission Date: 20091009
  Serious: Yes (Hospitalization)
  Sender: FDA-Public Use
  Company Number: B0072378A

PATIENT
  Age: 49 Year
  Sex: Female
  Weight: 89 kg

DRUGS (11)
  1. ONDANSETRON [Suspect]
     Dosage: 4MG SINGLE DOSE
  2. PAROXETINE HCL [Suspect]
     Indication: DEPRESSION
     Dosage: 30MG PER DAY
  3. METHYLENE BLUE [Suspect]
  4. DICLOFENAC SODIUM [Concomitant]
     Route: 054
  5. INDOMETHACIN [Concomitant]
  6. PROPOFOL [Concomitant]
  7. ATRACURIUM [Concomitant]
  8. OXYGEN [Concomitant]
     Route: 025
  9. NITROUS OXIDE [Concomitant]
     Route: 055
  10. ENFLURANE [Concomitant]
     Route: 055
  11. MORPHINE [Concomitant]
     Indication: ANALGESIA
     Route: 030

REACTIONS (17)
  - AGITATION [None]
  - ALKALOSIS [None]
  - BLOOD PRESSURE SYSTOLIC INCREASED [None]
  - CONFUSIONAL STATE [None]
  - DEPRESSED LEVEL OF CONSCIOUSNESS [None]
  - DISORIENTATION [None]
  - DRUG INTERACTION [None]
  - DRUG TOXICITY [None]
  - DYSKINESIA [None]
  - GAZE PALSY [None]
  - HEART RATE INCREASED [None]
  - ILL-DEFINED DISORDER [None]
  - MENTAL STATUS CHANGES POSTOPERATIVE [None]
  - MYDRIASIS [None]
  - OCULOGYRIC CRISIS [None]
  - PCO2 INCREASED [None]
  - PYREXIA [None]
